FAERS Safety Report 13493381 (Version 5)
Quarter: 2018Q1

REPORT INFORMATION
  Report Type: Report from Study
  Country: US (occurrence: US)
  Receive Date: 20170427
  Receipt Date: 20180326
  Transmission Date: 20180508
  Serious: Yes (Hospitalization)
  Sender: FDA-Public Use
  Company Number: US-ACTELION-A-NJ2017-152959

PATIENT
  Age: 29 Year
  Sex: Female
  Weight: 77.55 kg

DRUGS (4)
  1. SILDENAFIL CITRATE. [Concomitant]
     Active Substance: SILDENAFIL CITRATE
     Dosage: 20 MG, TID
     Route: 048
  2. LASIX [Concomitant]
     Active Substance: FUROSEMIDE
  3. OPSUMIT [Suspect]
     Active Substance: MACITENTAN
     Indication: PULMONARY HYPERTENSION
     Dosage: 10 MG, QD
     Route: 048
     Dates: start: 20170416
  4. MYCOPHENOLATE [Concomitant]
     Active Substance: MYCOPHENOLIC ACID
     Indication: SYSTEMIC LUPUS ERYTHEMATOSUS

REACTIONS (11)
  - Pulmonary arterial pressure increased [Recovered/Resolved]
  - Pulmonary hypertension [Unknown]
  - Respiratory disorder [Recovering/Resolving]
  - Influenza [Recovered/Resolved]
  - Tracheal operation [Unknown]
  - Condition aggravated [Recovering/Resolving]
  - Oxygen consumption increased [Recovering/Resolving]
  - Hypoxia [Recovering/Resolving]
  - Pulmonary fibrosis [Unknown]
  - Pyrexia [Recovered/Resolved]
  - Pulmonary oedema [Recovered/Resolved]

NARRATIVE: CASE EVENT DATE: 20170705
